FAERS Safety Report 13985231 (Version 1)
Quarter: 2017Q3

REPORT INFORMATION
  Report Type: Spontaneous
  Country: US (occurrence: None)
  Receive Date: 20170918
  Receipt Date: 20170918
  Transmission Date: 20171128
  Serious: Yes (Life-Threatening, Hospitalization)
  Sender: FDA-Public Use
  Company Number: None

PATIENT
  Age: 45 Year
  Sex: Male

DRUGS (4)
  1. HYDROMORPHONE [Suspect]
     Active Substance: HYDROMORPHONE
     Indication: POSTOPERATIVE CARE
     Route: 037
  2. BUPIVICAINE [Suspect]
     Active Substance: BUPIVACAINE
     Route: 037
  3. HYDROMORPHONE [Suspect]
     Active Substance: HYDROMORPHONE
     Indication: SPINAL LAMINECTOMY
     Route: 037
  4. CLONIDINE. [Suspect]
     Active Substance: CLONIDINE
     Route: 037

REACTIONS (7)
  - Accidental overdose [None]
  - Sedation [None]
  - Hypotension [None]
  - Bradycardia [None]
  - Wrong technique in device usage process [None]
  - Device failure [None]
  - Device leakage [None]

NARRATIVE: CASE EVENT DATE: 20170831
